FAERS Safety Report 7362326-1 (Version None)
Quarter: 2011Q1

REPORT INFORMATION
  Report Type: 
  Country: None (occurrence: None)
  Receive Date: 20110318
  Receipt Date: 20110310
  Transmission Date: 20110831
  Serious: Yes (Other)
  Sender: FDA-Public Use
  Company Number: US-CEPHALON-2011001129

PATIENT
  Sex: Male

DRUGS (2)
  1. PROVIGIL [Suspect]
     Route: 048
     Dates: start: 20110101, end: 20110101
  2. BENADRYL [Concomitant]

REACTIONS (6)
  - DYSPNOEA [None]
  - BRONCHITIS [None]
  - MUSCLE STRAIN [None]
  - PHARYNGEAL OEDEMA [None]
  - HYPERSENSITIVITY [None]
  - PLEURISY [None]
